FAERS Safety Report 4665942-0 (Version None)
Quarter: 2005Q2

REPORT INFORMATION
  Report Type: 
  Country: None (occurrence: None)
  Receive Date: 20050517
  Receipt Date: 20050517
  Transmission Date: 20051028
  Serious: No
  Sender: FDA-Public Use
  Company Number: None

PATIENT
  Age: 37 Year
  Sex: Male
  Weight: 70.3075 kg

DRUGS (1)
  1. PROPECIA [Suspect]
     Indication: ALOPECIA
     Dosage: 1 MG DAILY ORAL
     Route: 048
     Dates: start: 20040419, end: 20040426

REACTIONS (2)
  - ERECTILE DYSFUNCTION [None]
  - SEXUAL DYSFUNCTION [None]
